FAERS Safety Report 5088259-1 (Version None)
Quarter: 2006Q3

REPORT INFORMATION
  Report Type: 
  Country: None (occurrence: None)
  Receive Date: 20060823
  Receipt Date: 20060823
  Transmission Date: 20061208
  Serious: Yes (Hospitalization, Other)
  Sender: FDA-Public Use
  Company Number: None

PATIENT
  Age: 86 Year
  Sex: Male
  Weight: 76.2043 kg

DRUGS (2)
  1. NAVELBINE [Suspect]
     Dosage: 30 MG/M2 IV; 27 MG/M2 IV
     Route: 042
     Dates: start: 20060502
  2. NAVELBINE [Suspect]
     Dosage: 30 MG/M2 IV; 27 MG/M2 IV
     Route: 042
     Dates: start: 20060509

REACTIONS (4)
  - BACK PAIN [None]
  - BLOOD PRESSURE INCREASED [None]
  - DYSPNOEA [None]
  - MUSCULOSKELETAL PAIN [None]
